FAERS Safety Report 15048276 (Version 3)
Quarter: 2018Q3

REPORT INFORMATION
  Report Type: Spontaneous
  Country: US (occurrence: US)
  Receive Date: 20180622
  Receipt Date: 20180928
  Transmission Date: 20181010
  Serious: No
  Sender: FDA-Public Use
  Company Number: US-TEVA-2018-US-906713

PATIENT
  Age: 67 Year
  Sex: Female

DRUGS (6)
  1. DONNUTAL [Concomitant]
     Route: 065
  2. OCTREOTIDE. [Suspect]
     Active Substance: OCTREOTIDE
     Dosage: 1ML 2?3 INJECTIONS, FOR 3?5 WEEKS RESUMED INJECTION DAILY.
     Route: 065
     Dates: start: 20171007, end: 20180531
  3. PAREGORIC SYRUP [Concomitant]
     Route: 065
  4. OCTREOTIDE. [Suspect]
     Active Substance: OCTREOTIDE
     Dosage: ONLY SIDE EFFECTS
     Route: 065
     Dates: start: 20180626
  5. PHENERGAN [Concomitant]
     Active Substance: PROMETHAZINE HYDROCHLORIDE
     Route: 065
  6. LOMOTIL [Concomitant]
     Active Substance: ATROPINE SULFATE\DIPHENOXYLATE HYDROCHLORIDE
     Route: 065

REACTIONS (11)
  - Injection site pain [Not Recovered/Not Resolved]
  - Pain [Unknown]
  - Drug dose omission [Unknown]
  - Alopecia [Recovered/Resolved]
  - Myalgia [Recovered/Resolved]
  - Swelling [Unknown]
  - Blood heavy metal increased [Unknown]
  - Impaired driving ability [Unknown]
  - Hair colour changes [Recovered/Resolved]
  - Arthralgia [Recovered/Resolved]
  - Musculoskeletal stiffness [Recovered/Resolved]

NARRATIVE: CASE EVENT DATE: 20180507
